FAERS Safety Report 6839577-5 (Version None)
Quarter: 2010Q3

REPORT INFORMATION
  Report Type: 
  Country: None (occurrence: None)
  Receive Date: 20100714
  Receipt Date: 20100405
  Transmission Date: 20110219
  Serious: No
  Sender: FDA-Public Use
  Company Number: A0853496A

PATIENT
  Age: 67 Year
  Sex: Male

DRUGS (2)
  1. FLOVENT [Suspect]
     Indication: CHRONIC OBSTRUCTIVE PULMONARY DISEASE
     Dosage: 2PUFF TWICE PER DAY
     Route: 055
     Dates: start: 20090701
  2. ALBUTEROL [Concomitant]
     Route: 055

REACTIONS (4)
  - ARTHRALGIA [None]
  - CHEST PAIN [None]
  - DRUG INEFFECTIVE [None]
  - VISION BLURRED [None]
